FAERS Safety Report 7269625-2 (Version None)
Quarter: 2011Q1

REPORT INFORMATION
  Report Type: 
  Country: None (occurrence: None)
  Receive Date: 20110124
  Receipt Date: 20101223
  Transmission Date: 20110831
  Serious: Yes (Other)
  Sender: FDA-Public Use
  Company Number: ACO_21178_2010

PATIENT
  Age: 65 Year
  Sex: Female
  Weight: 113.4 kg

DRUGS (16)
  1. OMEPRAZOLE [Concomitant]
  2. FUROSEMIDE [Concomitant]
  3. WELLBUTRIN [Concomitant]
  4. CLONAZEPAM [Concomitant]
  5. AMLODIPINE [Concomitant]
  6. ARICEPT [Concomitant]
  7. AMPYRA [Suspect]
     Indication: GAIT DISTURBANCE
     Dosage: 10MG BID, ORAL
     Route: 048
     Dates: start: 20100813, end: 20100929
  8. LEVOTHYROXINE SODIUM [Concomitant]
  9. HYDROCODONE [Concomitant]
  10. SOMA [Concomitant]
  11. BACLOFEN [Concomitant]
  12. RANITIDINE [Concomitant]
  13. CYCLOBENZAPRINE [Concomitant]
  14. CITALOPRAM HYDROBROMIDE [Concomitant]
  15. NEURONTIN [Concomitant]
  16. MORPHINE SULFATE [Concomitant]

REACTIONS (12)
  - TREMOR [None]
  - MOBILITY DECREASED [None]
  - CATARACT [None]
  - VISUAL IMPAIRMENT [None]
  - FEELING JITTERY [None]
  - VISION BLURRED [None]
  - DYSURIA [None]
  - WEIGHT INCREASED [None]
  - JOINT SWELLING [None]
  - PAIN IN EXTREMITY [None]
  - ASTHENIA [None]
  - VITREOUS FLOATERS [None]
